FAERS Safety Report 9966936 (Version 2)
Quarter: 2014Q1

REPORT INFORMATION
  Report Type: Report from Study
  Country: BR (occurrence: BR)
  Receive Date: 20140305
  Receipt Date: 20140305
  Transmission Date: 20141002
  Serious: Yes (Other)
  Sender: FDA-Public Use
  Company Number: ALCN2014BR001414

PATIENT
  Sex: Female
  Weight: 60 kg

DRUGS (5)
  1. TRAVATAN [Suspect]
     Indication: GLAUCOMA
     Dosage: 1 GTT, UNK
     Route: 047
  2. LOSARTANA POTASSICA [Concomitant]
     Indication: HYPERTENSION
     Dosage: 100 MG, UNK
     Route: 048
     Dates: start: 1999
  3. ANCORON [Concomitant]
     Indication: ARRHYTHMIA
     Dosage: 200 MG, UNK
     Route: 048
     Dates: start: 2012
  4. FUROSEMIDE [Concomitant]
     Indication: RENAL DISORDER
     Dosage: 40 MG, UNK
     Route: 048
     Dates: start: 2013
  5. CARDIOLOL [Concomitant]
     Indication: ARRHYTHMIA
     Dosage: 25 MG, UNK
     Route: 048
     Dates: start: 2012

REACTIONS (1)
  - Femur fracture [Unknown]
